FAERS Safety Report 12696480 (Version 1)
Quarter: 2016Q3

REPORT INFORMATION
  Report Type: Spontaneous
  Country: US (occurrence: US)
  Receive Date: 20160830
  Receipt Date: 20160830
  Transmission Date: 20161109
  Serious: No
  Sender: FDA-Public Use
  Company Number: US-TEVA-682724ACC

PATIENT
  Age: 44 Year
  Sex: Female

DRUGS (1)
  1. PARAGARD T 380A [Suspect]
     Active Substance: COPPER
     Indication: CONTRACEPTION
     Dates: start: 2010, end: 201506

REACTIONS (13)
  - Blood copper increased [Unknown]
  - Detoxification [Not Recovered/Not Resolved]
  - Depression [Unknown]
  - Libido decreased [Unknown]
  - Muscle atrophy [Unknown]
  - Dyspareunia [Unknown]
  - Candida infection [Unknown]
  - Fatigue [Unknown]
  - Lethargy [Unknown]
  - Anxiety [Unknown]
  - Vaginal haemorrhage [Unknown]
  - Arthralgia [Unknown]
  - Feeling abnormal [Unknown]
